FAERS Safety Report 16900152 (Version 1)
Quarter: 2019Q4

REPORT INFORMATION
  Report Type: Spontaneous
  Country: FR (occurrence: FR)
  Receive Date: 20191009
  Receipt Date: 20191009
  Transmission Date: 20200122
  Serious: Yes (Disabling, Congenital Anomaly, Other)
  Sender: FDA-Public Use
  Company Number: FR-GLAXOSMITHKLINE-FR2019179281

PATIENT
  Age: 6 Month
  Sex: Female

DRUGS (1)
  1. LAMICTAL [Suspect]
     Active Substance: LAMOTRIGINE
     Indication: EPILEPSY
     Dosage: 300 MG, UNK
     Route: 064
     Dates: start: 20170517, end: 20180212

REACTIONS (5)
  - Foetal exposure during pregnancy [Unknown]
  - Developmental delay [Recovered/Resolved with Sequelae]
  - Psychomotor retardation [Recovered/Resolved with Sequelae]
  - Autism spectrum disorder [Recovered/Resolved with Sequelae]
  - Hypotonia [Recovered/Resolved with Sequelae]

NARRATIVE: CASE EVENT DATE: 201809
